FAERS Safety Report 25582820 (Version 2)
Quarter: 2025Q3

REPORT INFORMATION
  Report Type: Report from Study
  Country: US (occurrence: US)
  Receive Date: 20250720
  Receipt Date: 20250917
  Transmission Date: 20251021
  Serious: Yes (Hospitalization)
  Sender: ABBVIE
  Company Number: US-JNJFOC-20250711410

PATIENT
  Age: 67 Year
  Sex: Male
  Weight: 76.64 kg

DRUGS (4)
  1. IBRUTINIB [Suspect]
     Active Substance: IBRUTINIB
     Indication: Chronic lymphocytic leukaemia
     Route: 048
     Dates: start: 20240314
  2. ALLOPURINOL [Concomitant]
     Active Substance: ALLOPURINOL
     Indication: Hyperuricaemia
     Dates: start: 20240605
  3. MAGNESIUM OXIDE E [Concomitant]
     Indication: Hypomagnesaemia
     Dates: start: 20240508
  4. PREDNISONE [Concomitant]
     Active Substance: PREDNISONE
     Indication: Sarcoidosis
     Dates: start: 20240705

REACTIONS (5)
  - Head injury [Unknown]
  - Fall [Unknown]
  - Dizziness [Unknown]
  - Hypoxia [Recovered/Resolved]
  - Syncope [Recovered/Resolved]

NARRATIVE: CASE EVENT DATE: 20240722
